FAERS Safety Report 10304217 (Version 2)
Quarter: 2014Q3

REPORT INFORMATION
  Report Type: Spontaneous
  Country: US (occurrence: US)
  Receive Date: 20140714
  Receipt Date: 20140731
  Transmission Date: 20150326
  Serious: Yes (Hospitalization)
  Sender: FDA-Public Use
  Company Number: US-MERCK-1407USA005767

PATIENT
  Age: 69 Year
  Sex: Male

DRUGS (10)
  1. GEMFIBROZIL. [Concomitant]
     Active Substance: GEMFIBROZIL
     Dosage: 600 MG 1 TABLET PO DAILY
     Route: 048
  2. OMEPRAZOLE. [Concomitant]
     Active Substance: OMEPRAZOLE
     Dosage: 20 MG 1 TABLET PO DAILY
     Route: 048
  3. JANUVIA [Suspect]
     Active Substance: SITAGLIPTIN PHOSPHATE
     Dosage: 1 TABLET PO DAILY
     Route: 048
  4. ASPIRIN. [Concomitant]
     Active Substance: ASPIRIN
     Dosage: 81 MG 1 TABLET PO DAILY
     Route: 048
  5. FLONASE [Concomitant]
     Active Substance: FLUTICASONE PROPIONATE
     Dosage: 2 SPRAYS TO EACH NOSTRIL DAILY
     Route: 045
  6. AMLODIPINE BESYLATE (+) VALSARTAN [Concomitant]
     Dosage: 1 TABLET PO DAILY
     Route: 048
  7. CLOBETASOL PROPIONATE. [Concomitant]
     Active Substance: CLOBETASOL PROPIONATE
     Dosage: 1 APPLICATION TOPICALLY TWICE DAILY
     Route: 061
  8. GLIPIZIDE. [Concomitant]
     Active Substance: GLIPIZIDE
     Dosage: 10 MG 1 TABLET PO TWICE DAILY
     Route: 048
  9. HYDROXYZINE [Concomitant]
     Active Substance: HYDROXYZINE\HYDROXYZINE HYDROCHLORIDE
     Indication: ANXIETY
     Dosage: 3 TIMES DAILY AS NEEDED
     Route: 048
  10. CETIRIZINE HYDROCHLORIDE. [Concomitant]
     Active Substance: CETIRIZINE HYDROCHLORIDE
     Dosage: 10 MG 1 PO DAILY
     Route: 048

REACTIONS (3)
  - Central venous catheterisation [Recovering/Resolving]
  - Haemodialysis [Recovering/Resolving]
  - Tubulointerstitial nephritis [Recovering/Resolving]
